FAERS Safety Report 10943546 (Version 3)
Quarter: 2015Q4

REPORT INFORMATION
  Report Type: Spontaneous
  Country: US (occurrence: US)
  Receive Date: 20150322
  Receipt Date: 20151113
  Transmission Date: 20160304
  Serious: No
  Sender: FDA-Public Use
  Company Number: US-JNJFOC-20140716811

PATIENT
  Sex: Male

DRUGS (6)
  1. RISPERDAL [Suspect]
     Active Substance: RISPERIDONE
     Indication: ASPERGER^S DISORDER
     Dosage: 1-2 MG
     Route: 048
     Dates: start: 200412, end: 201207
  2. RISPERDAL [Suspect]
     Active Substance: RISPERIDONE
     Indication: HALLUCINATION, AUDITORY
     Dosage: 1-2 MG
     Route: 048
     Dates: start: 200412, end: 201207
  3. RISPERDAL [Suspect]
     Active Substance: RISPERIDONE
     Indication: ASPERGER^S DISORDER
     Route: 048
     Dates: end: 201210
  4. PROZAC [Concomitant]
     Active Substance: FLUOXETINE HYDROCHLORIDE
     Indication: DEPRESSION
     Route: 065
     Dates: start: 2004, end: 2012
  5. RISPERDAL [Suspect]
     Active Substance: RISPERIDONE
     Indication: HALLUCINATION, AUDITORY
     Route: 048
     Dates: end: 201210
  6. RISPERIDONE. [Suspect]
     Active Substance: RISPERIDONE
     Indication: PRODUCT USED FOR UNKNOWN INDICATION
     Route: 048

REACTIONS (2)
  - Obesity [Unknown]
  - Gynaecomastia [Unknown]
